FAERS Safety Report 23733316 (Version 1)
Quarter: 2024Q2

REPORT INFORMATION
  Report Type: Report from Study
  Country: US (occurrence: US)
  Receive Date: 20240411
  Receipt Date: 20240411
  Transmission Date: 20240716
  Serious: Yes (Hospitalization)
  Sender: FDA-Public Use
  Company Number: US-BAUSCH-BL-2024-005403

PATIENT
  Age: 15 Year
  Sex: Female

DRUGS (1)
  1. RETIN-A MICRO [Suspect]
     Active Substance: TRETINOIN
     Indication: Acne
     Route: 061

REACTIONS (2)
  - Hospitalisation [Unknown]
  - Circumstance or information capable of leading to medication error [Unknown]
